FAERS Safety Report 9521255 (Version 2)
Quarter: 2013Q3

REPORT INFORMATION
  Report Type: Spontaneous
  Country: DE (occurrence: DE)
  Receive Date: 20130913
  Receipt Date: 20130913
  Transmission Date: 20140515
  Serious: Yes (Other)
  Sender: FDA-Public Use
  Company Number: DE-BAYER-2013-084525

PATIENT
  Age: 29 Year
  Sex: Female

DRUGS (7)
  1. MIRENA [Suspect]
     Indication: CONTRACEPTION
     Dosage: 20 MCG/24HR, CONT
     Route: 015
     Dates: start: 201303
  2. MIRENA [Suspect]
     Indication: DYSMENORRHOEA
  3. INSPRA [Concomitant]
  4. ASS 100 [Concomitant]
     Dosage: UNK UNK, QOD
  5. METOPROLOL [Concomitant]
  6. L THYROXIN [Concomitant]
  7. ESTELLE [Concomitant]

REACTIONS (4)
  - Visual impairment [Not Recovered/Not Resolved]
  - Headache [None]
  - Sensory disturbance [None]
  - Gamma-glutamyltransferase increased [None]
